FAERS Safety Report 8968927 (Version 1)
Quarter: 2012Q4

REPORT INFORMATION
  Report Type: 
  Country: DK (occurrence: GB)
  Receive Date: 20121218
  Receipt Date: 20121218
  Transmission Date: 20130627
  Serious: Yes (Life-Threatening, Disabling, Other)
  Sender: FDA-Public Use
  Company Number: GB-FRI-1000041096

PATIENT
  Age: 26 Year
  Sex: Female
  Weight: 72 kg

DRUGS (4)
  1. ESCITALOPRAM [Suspect]
     Indication: DEPRESSION
     Dosage: 10 mg
     Route: 048
     Dates: start: 20030709, end: 20031002
  2. ESCITALOPRAM [Suspect]
     Route: 048
     Dates: start: 2012, end: 201204
  3. FLUPENTIXOL [Concomitant]
     Indication: DEPRESSION
     Route: 048
     Dates: start: 2003
  4. VALPROATE [Concomitant]
     Indication: DEPRESSION
     Dosage: 750 mg
     Route: 048
     Dates: start: 2012

REACTIONS (1)
  - Iron deficiency anaemia [Recovered/Resolved]
